FAERS Safety Report 13938619 (Version 2)
Quarter: 2017Q3

REPORT INFORMATION
  Report Type: Spontaneous
  Country: BR (occurrence: BR)
  Receive Date: 20170905
  Receipt Date: 20170919
  Transmission Date: 20171127
  Serious: Yes (Other)
  Sender: FDA-Public Use
  Company Number: BR-009507513-1709BRA001198

PATIENT
  Age: 3 Year
  Sex: Male

DRUGS (1)
  1. MERCILON [Suspect]
     Active Substance: DESOGESTREL\ETHINYL ESTRADIOL
     Route: 064

REACTIONS (3)
  - Seizure [Not Recovered/Not Resolved]
  - Brain hypoxia [Unknown]
  - Nosocomial infection [Unknown]

NARRATIVE: CASE EVENT DATE: 2005
